FAERS Safety Report 7720065-9 (Version None)
Quarter: 2011Q3

REPORT INFORMATION
  Report Type: 
  Country: None (occurrence: None)
  Receive Date: 20110824
  Receipt Date: 20110809
  Transmission Date: 20111222
  Serious: Yes (Hospitalization)
  Sender: FDA-Public Use
  Company Number: 2011MA011560

PATIENT
  Age: 16 Year
  Sex: Male

DRUGS (2)
  1. ZUCLOPENTHIXOL (ZUCLOPENTHIXOL) [Suspect]
     Indication: SCHIZOPHRENIFORM DISORDER
     Dosage: 50 MG; UNK; IM
     Route: 030
  2. RISPERIDONE [Suspect]
     Indication: SCHIZOPHRENIFORM DISORDER
     Dosage: 0.5 MG;BID;UNK

REACTIONS (4)
  - NEUROLEPTIC MALIGNANT SYNDROME [None]
  - PSYCHOTIC DISORDER [None]
  - TACHYCARDIA [None]
  - INCONTINENCE [None]
